FAERS Safety Report 18849505 (Version 2)
Quarter: 2021Q1

REPORT INFORMATION
  Report Type: Report from Study
  Country: US (occurrence: US)
  Receive Date: 20210205
  Receipt Date: 20210301
  Transmission Date: 20210419
  Serious: Yes (Death, Hospitalization)
  Sender: FDA-Public Use
  Company Number: US-RECORDATI RARE DISEASES-2106383

PATIENT
  Age: 62 Year
  Sex: Male
  Weight: 97.51 kg

DRUGS (1)
  1. SIGNIFOR [Suspect]
     Active Substance: PASIREOTIDE DIASPARTATE
     Indication: CUSHING^S SYNDROME
     Route: 058

REACTIONS (3)
  - Pulmonary embolism [Unknown]
  - Loss of consciousness [Recovered/Resolved]
  - Cushing^s syndrome [Fatal]

NARRATIVE: CASE EVENT DATE: 20210216
